FAERS Safety Report 9729266 (Version 1)
Quarter: 2013Q4

REPORT INFORMATION
  Report Type: Spontaneous
  Country: US (occurrence: US)
  Receive Date: 20131204
  Receipt Date: 20131204
  Transmission Date: 20140711
  Serious: Yes (Hospitalization)
  Sender: FDA-Public Use
  Company Number: US-BAYER-2013-147241

PATIENT
  Age: 28 Year
  Sex: Female
  Weight: 240.73 kg

DRUGS (8)
  1. YAZ [Suspect]
  2. IRON SUPPLEMENT [Concomitant]
  3. PREMARIN [Concomitant]
  4. PROVERA [Concomitant]
  5. TYLENOL #3 [Concomitant]
  6. TRI-SPRINTEC [Concomitant]
  7. COLACE [Concomitant]
  8. FERROUS SULFATE [Concomitant]

REACTIONS (2)
  - Deep vein thrombosis [None]
  - Pulmonary embolism [None]
